FAERS Safety Report 25396547 (Version 1)
Quarter: 2025Q2

REPORT INFORMATION
  Report Type: Spontaneous
  Country: US (occurrence: None)
  Receive Date: 20250603
  Receipt Date: 20250603
  Transmission Date: 20250717
  Serious: Yes (Hospitalization)
  Sender: FDA-CTU
  Company Number: None

PATIENT
  Age: 43 Year
  Sex: Male
  Weight: 80.1 kg

DRUGS (4)
  1. ZOLOFT [Suspect]
     Active Substance: SERTRALINE HYDROCHLORIDE
     Indication: Anxiety
  2. LEXAPRO [Suspect]
     Active Substance: ESCITALOPRAM OXALATE
  3. EFFEXOR [Suspect]
     Active Substance: VENLAFAXINE HYDROCHLORIDE
  4. MIRTAZAPINE [Suspect]
     Active Substance: MIRTAZAPINE

REACTIONS (5)
  - Drug ineffective [None]
  - Suicidal ideation [None]
  - Sleep disorder [None]
  - Hypoaesthesia [None]
  - Apathy [None]

NARRATIVE: CASE EVENT DATE: 20240402
